FAERS Safety Report 8926976 (Version 1)
Quarter: 2012Q4

REPORT INFORMATION
  Report Type: 
  Country: CO (occurrence: CO)
  Receive Date: 20121127
  Receipt Date: 20121127
  Transmission Date: 20130627
  Serious: Yes (Other)
  Sender: FDA-Public Use
  Company Number: CO-JNJFOC-20121110727

PATIENT
  Age: 50 Year
  Sex: Female

DRUGS (1)
  1. TOPAMAC [Suspect]
     Indication: MIGRAINE PROPHYLAXIS
     Route: 048
     Dates: start: 20121003, end: 20121010

REACTIONS (2)
  - Inflammation [Unknown]
  - Hypersensitivity [Unknown]
